FAERS Safety Report 8389005-6 (Version None)
Quarter: 2012Q2

REPORT INFORMATION
  Report Type: 
  Country: None (occurrence: None)
  Receive Date: 20120528
  Receipt Date: 20120521
  Transmission Date: 20120825
  Serious: No
  Sender: FDA-Public Use
  Company Number: US-PFIZER INC-2012079980

PATIENT
  Sex: Female

DRUGS (1)
  1. ADVIL [Suspect]
     Indication: HEADACHE
     Dosage: 400 MG, 1X/DAY
     Route: 048
     Dates: end: 20120324

REACTIONS (4)
  - HALLUCINATION [None]
  - NASOPHARYNGITIS [None]
  - HEADACHE [None]
  - HYPERSENSITIVITY [None]
